FAERS Safety Report 4981023-0 (Version None)
Quarter: 2006Q1

REPORT INFORMATION
  Report Type: 
  Country: None (occurrence: None)
  Receive Date: 20060227
  Receipt Date: 20051216
  Transmission Date: 20060701
  Serious: Yes (Hospitalization)
  Sender: FDA-Public Use
  Company Number: WAES 0512USA03183

PATIENT
  Age: 65 Year
  Sex: Female

DRUGS (14)
  1. ZOCOR [Suspect]
     Dosage: DAILY/PO
     Route: 048
     Dates: start: 20030303, end: 20030306
  2. ZOCOR [Suspect]
     Dosage: DAILY/PO
     Route: 048
     Dates: end: 20050303
  3. GEMFIBROZIL [Suspect]
     Dates: end: 20030303
  4. COZAAR [Concomitant]
  5. DILTIAZEM HCL [Concomitant]
  6. HUMULIN N [Concomitant]
  7. HYDRODIURIL [Concomitant]
  8. NOVOLIN [Concomitant]
  9. PROCRIT [Concomitant]
  10. OVAR [Concomitant]
  11. REGULAR INSULIN [Concomitant]
  12. ALBUTEROL SULFATE AUTOHALER [Concomitant]
  13. CLONIDINE [Concomitant]
  14. GLYBURIDE [Concomitant]

REACTIONS (4)
  - ACTINIC KERATOSIS [None]
  - PRESCRIBED OVERDOSE [None]
  - RENAL FAILURE ACUTE [None]
  - RHABDOMYOLYSIS [None]
